FAERS Safety Report 15150343 (Version 1)
Quarter: 2018Q3

REPORT INFORMATION
  Report Type: Spontaneous
  Country: US (occurrence: US)
  Receive Date: 20180619
  Receipt Date: 20180619
  Transmission Date: 20181010
  Serious: Yes (Death, Hospitalization)
  Sender: FDA-Public Use
  Company Number: None

PATIENT
  Age: 78 Year
  Sex: Male

DRUGS (1)
  1. ENOXAPARIN 120/0.8 ICJ [Suspect]
     Active Substance: ENOXAPARIN SODIUM
     Indication: PULMONARY EMBOLISM
     Dosage: OTHER DOSE:120/0.8 MG/ML;?
     Route: 048
     Dates: start: 20180606

REACTIONS (1)
  - Death [None]

NARRATIVE: CASE EVENT DATE: 20180612
